FAERS Safety Report 24462207 (Version 1)
Quarter: 2024Q4

REPORT INFORMATION
  Report Type: Report from Study
  Country: US (occurrence: US)
  Receive Date: 20241018
  Receipt Date: 20241018
  Transmission Date: 20250114
  Serious: No
  Sender: ROCHE
  Company Number: US-ROCHE-3563641

PATIENT
  Age: 65 Year
  Sex: Female

DRUGS (10)
  1. RITUXAN [Suspect]
     Active Substance: RITUXIMAB
     Indication: Ocular pemphigoid
     Dosage: ONCE
     Route: 065
     Dates: start: 20231208
  2. RITUXAN [Suspect]
     Active Substance: RITUXIMAB
     Indication: Conjunctivitis
  3. RITUXAN [Suspect]
     Active Substance: RITUXIMAB
     Indication: Pemphigoid
  4. MYCOPHENOLATE MOFETIL [Suspect]
     Active Substance: MYCOPHENOLATE MOFETIL
     Indication: Product used for unknown indication
     Dosage: 2- 500MG CAPSULES PER DOSE
     Route: 048
     Dates: start: 20240101
  5. DOXYCYCLINE [Concomitant]
     Active Substance: DOXYCYCLINE
  6. LOSARTAN [Concomitant]
     Active Substance: LOSARTAN
  7. CRESTOR [Concomitant]
     Active Substance: ROSUVASTATIN CALCIUM
  8. OZEMPIC [Concomitant]
     Active Substance: SEMAGLUTIDE
  9. RESTASIS [Concomitant]
     Active Substance: CYCLOSPORINE
  10. PREDNISOLONE [Concomitant]
     Active Substance: PREDNISOLONE

REACTIONS (2)
  - Insomnia [Recovered/Resolved]
  - Off label use [Unknown]

NARRATIVE: CASE EVENT DATE: 20231208
